FAERS Safety Report 8968085 (Version 1)
Quarter: 2012Q4

REPORT INFORMATION
  Report Type: 
  Country: US (occurrence: US)
  Receive Date: 20121217
  Receipt Date: 20121217
  Transmission Date: 20130627
  Serious: Yes (Hospitalization)
  Sender: FDA-Public Use
  Company Number: US-ASTRAZENECA-2012SE92171

PATIENT
  Age: 74 Year
  Sex: Male
  Weight: 65.8 kg

DRUGS (5)
  1. SYMBICORT PMDI [Suspect]
     Indication: ASTHMA
     Dosage: 80 MCG BID
     Route: 055
     Dates: start: 201012
  2. SYMBICORT PMDI [Suspect]
     Indication: CHRONIC OBSTRUCTIVE PULMONARY DISEASE
     Dosage: 80 MCG BID
     Route: 055
     Dates: start: 201012
  3. XANAX [Concomitant]
     Indication: ANXIETY
     Dosage: LOW DOSE
     Route: 048
     Dates: start: 1997
  4. ENALAPRIL [Concomitant]
     Indication: HYPERTENSION
     Route: 048
     Dates: start: 2010
  5. PREVACID OTC [Concomitant]
     Indication: GASTROOESOPHAGEAL REFLUX DISEASE
     Route: 048
     Dates: start: 2010

REACTIONS (4)
  - Constipation [Unknown]
  - Dyspnoea [Unknown]
  - Weight decreased [Unknown]
  - Off label use [Unknown]
